FAERS Safety Report 11403912 (Version 2)
Quarter: 2015Q3

REPORT INFORMATION
  Report Type: Report from Study
  Country: ZA (occurrence: ZA)
  Receive Date: 20150821
  Receipt Date: 20150904
  Transmission Date: 20151125
  Serious: Yes (Death, Other)
  Sender: FDA-Public Use
  Company Number: ZA-AMGEN-ZAFSL2015084483

PATIENT
  Age: 74 Year
  Sex: Male

DRUGS (5)
  1. PREXAN                             /00256201/ [Concomitant]
     Route: 048
  2. CORALAN [Concomitant]
     Active Substance: IVABRADINE HYDROCHLORIDE
     Dosage: 5 MG, QD
     Dates: start: 20121121
  3. SIMVASTATIN. [Concomitant]
     Active Substance: SIMVASTATIN
     Dosage: 40 G, QD
     Route: 048
  4. GLOTRIZINE [Concomitant]
     Dosage: 81 MG, UNK
  5. ARANESP [Suspect]
     Active Substance: DARBEPOETIN ALFA
     Indication: ANAEMIA
     Dosage: 80 MUG, Q2WK
     Route: 058
     Dates: start: 20121213, end: 201504

REACTIONS (4)
  - Hypertension [Fatal]
  - Myocardial ischaemia [Fatal]
  - Cardiac failure [Unknown]
  - Cardiomyopathy [Fatal]

NARRATIVE: CASE EVENT DATE: 20150710
